FAERS Safety Report 6259165-1 (Version None)
Quarter: 2009Q3

REPORT INFORMATION
  Report Type: 
  Country: None (occurrence: None)
  Receive Date: 20090707
  Receipt Date: 20090701
  Transmission Date: 20100115
  Serious: Yes (Other)
  Sender: FDA-Public Use
  Company Number: US-AVENTIS-200915750US

PATIENT
  Age: 43 Year
  Sex: Male

DRUGS (2)
  1. LANTUS [Suspect]
     Dosage: DOSE: 8-15 DEPENDS ON HOW HIGH SUGAR IS
     Route: 058
  2. OPTICLIK (INSULIN INJECTION PEN) [Suspect]

REACTIONS (3)
  - HYPOAESTHESIA [None]
  - LOCALISED INFECTION [None]
  - TOE AMPUTATION [None]
